FAERS Safety Report 14531430 (Version 1)
Quarter: 2018Q1

REPORT INFORMATION
  Report Type: Spontaneous
  Country: US (occurrence: US)
  Receive Date: 20180214
  Receipt Date: 20180214
  Transmission Date: 20180509
  Serious: Yes (Hospitalization, Other)
  Sender: FDA-Public Use
  Company Number: US-ASTRAZENECA-2018SE18256

PATIENT
  Sex: Male
  Weight: 77.1 kg

DRUGS (3)
  1. ALVESCO [Suspect]
     Active Substance: CICLESONIDE
     Indication: ASTHMA
     Dosage: 160 MCG, ONE PUFF TWICE PER DAY
     Route: 055
  2. ADVAIR 255 [Concomitant]
     Dosage: 1 INHALATION ONCE PER DAY
  3. ALBUTEROL. [Concomitant]
     Active Substance: ALBUTEROL

REACTIONS (5)
  - Underdose [Unknown]
  - Influenza [Not Recovered/Not Resolved]
  - Asthma [Unknown]
  - Pneumonia [Unknown]
  - Device malfunction [Unknown]
